FAERS Safety Report 15250997 (Version 1)
Quarter: 2018Q3

REPORT INFORMATION
  Report Type: Spontaneous
  Country: CN (occurrence: CN)
  Receive Date: 20180807
  Receipt Date: 20180807
  Transmission Date: 20181010
  Serious: Yes (Disabling)
  Sender: FDA-Public Use
  Company Number: PHHY2018CN064355

PATIENT
  Age: 68 Year
  Sex: Male
  Weight: 58.5 kg

DRUGS (3)
  1. SODIUM BICARBONATE. [Concomitant]
     Active Substance: SODIUM BICARBONATE
     Indication: URINE ALKALINISATION THERAPY
     Dosage: 05 G, TID
     Route: 048
  2. SEBIVO [Suspect]
     Active Substance: TELBIVUDINE
     Indication: VIRAL INFECTION
     Dosage: 1 DF, QD
     Route: 048
     Dates: start: 20180601, end: 20180609
  3. SODIUM CHLORIDE. [Concomitant]
     Active Substance: SODIUM CHLORIDE
     Indication: URINE ALKALINISATION THERAPY
     Dosage: 500 ML, QD
     Route: 042

REACTIONS (1)
  - Blood creatinine increased [Recovering/Resolving]

NARRATIVE: CASE EVENT DATE: 20180609
